FAERS Safety Report 19462240 (Version 1)
Quarter: 2021Q2

REPORT INFORMATION
  Report Type: Spontaneous
  Country: GB (occurrence: GB)
  Receive Date: 20210625
  Receipt Date: 20210625
  Transmission Date: 20210717
  Serious: Yes (Hospitalization, Other)
  Sender: FDA-Public Use
  Company Number: GB-BIOVITRUM-2021GB6386

PATIENT

DRUGS (1)
  1. ANAKINRA [Suspect]
     Active Substance: ANAKINRA
     Indication: BEHCET^S SYNDROME
     Route: 065

REACTIONS (3)
  - Bone marrow failure [Unknown]
  - Seizure [Unknown]
  - Off label use [Unknown]
